FAERS Safety Report 7372255-5 (Version None)
Quarter: 2011Q1

REPORT INFORMATION
  Report Type: 
  Country: None (occurrence: None)
  Receive Date: 20110324
  Receipt Date: 20101119
  Transmission Date: 20110831
  Serious: Yes (Other)
  Sender: FDA-Public Use
  Company Number: A0897001A

PATIENT
  Age: 62 Year
  Sex: Female

DRUGS (1)
  1. AVANDARYL [Suspect]
     Route: 048
     Dates: start: 20060203, end: 20070206

REACTIONS (7)
  - CARDIOVASCULAR DISORDER [None]
  - CHEST DISCOMFORT [None]
  - OEDEMA [None]
  - CORONARY ARTERY DISEASE [None]
  - CHEST PAIN [None]
  - HYPERTENSION [None]
  - MYOCARDIAL ISCHAEMIA [None]
